FAERS Safety Report 8469043 (Version 2)
Quarter: 2012Q4

REPORT INFORMATION
  Report Type: 
  Country: US (occurrence: US)
  Receive Date: 20120321
  Receipt Date: 20120905
  Transmission Date: 20130627
  Serious: Yes (Hospitalization)
  Sender: FDA-Public Use
  Company Number: US-BAYER-2012-025590

PATIENT
  Age: 32 Year
  Sex: Female
  Weight: 65.76 kg

DRUGS (12)
  1. YASMIN [Suspect]
     Indication: CONTRACEPTION
     Dosage: UNK
     Dates: start: 2006, end: 2010
  2. YASMIN [Suspect]
     Indication: PREMENSTRUAL SYNDROME
  3. YAZ [Suspect]
     Indication: CONTRACEPTION
     Dosage: UNK
     Dates: start: 2003, end: 2006
  4. YAZ [Suspect]
     Indication: PREMENSTRUAL SYNDROME
  5. NEXIUM [Concomitant]
     Indication: GASTROOESOPHAGEAL REFLUX DISEASE
     Dosage: UNK
     Dates: start: 2006, end: 2012
  6. SKELAXIN [Concomitant]
     Indication: BACK PAIN
     Dosage: 800 mg, BID as needed
  7. KEFLEX [Concomitant]
     Indication: LYMPHADENOPATHY
     Dosage: 500 mg, TID
  8. IBUPROFEN [Concomitant]
     Indication: BACK PAIN
     Dosage: Take one tablet TID as needed
  9. ZITHROMAX [Concomitant]
     Indication: PHARYNGITIS
     Dosage: 250 mg,
  10. DIFLUCAN [Concomitant]
     Indication: VAGINAL INFECTION
     Dosage: 150 mg/ today; may repeat in 7 days if needed
  11. DARVOCET [Concomitant]
  12. PHENERGAN [Concomitant]

REACTIONS (8)
  - Gallbladder injury [None]
  - Cholecystitis acute [None]
  - Pain [None]
  - Injury [None]
  - General physical health deterioration [None]
  - General physical health deterioration [None]
  - Anxiety [None]
  - Emotional distress [None]
